FAERS Safety Report 6517010-0 (Version None)
Quarter: 2009Q4

REPORT INFORMATION
  Report Type: 
  Country: None (occurrence: None)
  Receive Date: 20091223
  Receipt Date: 20091215
  Transmission Date: 20100525
  Serious: Yes (Hospitalization)
  Sender: FDA-Public Use
  Company Number: GXKR2009DE13439

PATIENT
  Age: 29 Year

DRUGS (4)
  1. AMITRIPTYLINE (NGX) [Suspect]
     Dosage: 400 MG/DAY
  2. ELONTRIL [Interacting]
     Dosage: 150 MG/DAY
  3. FLUSPIRILENE [Interacting]
     Dosage: 4 MG, QW
     Route: 030
  4. ANDROCUR [Concomitant]

REACTIONS (3)
  - DRUG INTERACTION [None]
  - GRAND MAL CONVULSION [None]
  - TONGUE BITING [None]
